FAERS Safety Report 15073254 (Version 1)
Quarter: 2018Q2

REPORT INFORMATION
  Report Type: Spontaneous
  Country: KR (occurrence: KR)
  Receive Date: 20180627
  Receipt Date: 20180627
  Transmission Date: 20180711
  Serious: Yes (Death, Other)
  Sender: FDA-Public Use
  Company Number: KR-009507513-1806KOR008339

PATIENT
  Age: 53 Year
  Sex: Male

DRUGS (2)
  1. INTERFERON ALFA-2B [Suspect]
     Active Substance: INTERFERON ALFA-2B
     Indication: ERDHEIM-CHESTER DISEASE
     Dosage: 10 IU, TIW
     Route: 058
  2. DEXAMETHASONE. [Suspect]
     Active Substance: DEXAMETHASONE
     Indication: STEROID THERAPY
     Dosage: 40 MG, UNK (HIH DOSE STEROID)

REACTIONS (10)
  - Hepatic failure [Fatal]
  - Asthenia [Unknown]
  - Hepatorenal syndrome [Unknown]
  - Hepatomegaly [Unknown]
  - Therapy non-responder [Unknown]
  - Depressed mood [Unknown]
  - Decreased appetite [Unknown]
  - Nausea [Unknown]
  - Erdheim-Chester disease [Unknown]
  - Myalgia [Unknown]
